FAERS Safety Report 15765699 (Version 1)
Quarter: 2018Q4

REPORT INFORMATION
  Report Type: Spontaneous
  Country: US (occurrence: US)
  Receive Date: 20181227
  Receipt Date: 20181227
  Transmission Date: 20190205
  Serious: No
  Sender: FDA-Public Use
  Company Number: None

PATIENT
  Age: 26 Year
  Sex: Female
  Weight: 110.25 kg

DRUGS (1)
  1. CYMBALTA [Suspect]
     Active Substance: DULOXETINE HYDROCHLORIDE
     Dosage: ?          QUANTITY:3 CAPSULE(S);?
     Route: 048

REACTIONS (8)
  - Night sweats [None]
  - Headache [None]
  - Diarrhoea [None]
  - Feeling abnormal [None]
  - Suicidal ideation [None]
  - Nightmare [None]
  - Irritability [None]
  - Nausea [None]

NARRATIVE: CASE EVENT DATE: 20181107
